FAERS Safety Report 7188007-5 (Version None)
Quarter: 2010Q4

REPORT INFORMATION
  Report Type: 
  Country: None (occurrence: None)
  Receive Date: 20101222
  Receipt Date: 20101214
  Transmission Date: 20110411
  Serious: Yes (Other)
  Sender: FDA-Public Use
  Company Number: JP-PFIZER INC-2010172030

PATIENT

DRUGS (2)
  1. AZULFIDINE [Suspect]
     Route: 048
  2. RHEUMATREX [Suspect]
     Route: 048

REACTIONS (1)
  - ANAEMIA MACROCYTIC [None]
